FAERS Safety Report 9831782 (Version 1)
Quarter: 2014Q1

REPORT INFORMATION
  Report Type: Spontaneous
  Country: US (occurrence: US)
  Receive Date: 20140121
  Receipt Date: 20140121
  Transmission Date: 20141002
  Serious: No
  Sender: FDA-Public Use
  Company Number: US-PFIZER INC-2014012959

PATIENT
  Sex: Female

DRUGS (7)
  1. MORPHINE SULFATE [Suspect]
     Dosage: UNK
  2. ALLEGRA [Suspect]
     Dosage: UNK
  3. DARVON [Suspect]
     Dosage: UNK
  4. AMOXICLAV [Suspect]
     Dosage: UNK
  5. FEXOFENADINE [Suspect]
     Dosage: UNK
  6. NITROFURANTOIN [Suspect]
     Dosage: UNK
  7. PROPOXYPHENE [Suspect]
     Dosage: UNK

REACTIONS (1)
  - Drug hypersensitivity [Unknown]
